FAERS Safety Report 11304840 (Version 1)
Quarter: 2015Q3

REPORT INFORMATION
  Report Type: Spontaneous
  Country: US (occurrence: US)
  Receive Date: 20150723
  Receipt Date: 20150723
  Transmission Date: 20151125
  Serious: No
  Sender: FDA-Public Use
  Company Number: US-JNJFOC-20140415095

PATIENT
  Age: 62 Year
  Sex: Female
  Weight: 89.81 kg

DRUGS (2)
  1. ZYRTEC [Suspect]
     Active Substance: CETIRIZINE HYDROCHLORIDE
     Route: 065
  2. ZYRTEC [Suspect]
     Active Substance: CETIRIZINE HYDROCHLORIDE
     Indication: ANAPHYLACTIC REACTION
     Route: 065
     Dates: start: 20140417

REACTIONS (7)
  - Dyspnoea [Recovering/Resolving]
  - Product contamination [Unknown]
  - Urticaria [Recovering/Resolving]
  - Swelling [Recovering/Resolving]
  - Sinus congestion [Recovering/Resolving]
  - Dysphonia [Recovering/Resolving]
  - Paraesthesia oral [Recovering/Resolving]

NARRATIVE: CASE EVENT DATE: 20140417
